FAERS Safety Report 7391133-9 (Version None)
Quarter: 2011Q1

REPORT INFORMATION
  Report Type: 
  Country: None (occurrence: None)
  Receive Date: 20110324
  Receipt Date: 20090212
  Transmission Date: 20110831
  Serious: Yes (Death)
  Sender: FDA-Public Use
  Company Number: LMI-2011-00241

PATIENT
  Age: 78 Year
  Sex: Male

DRUGS (2)
  1. DEFINITY [Suspect]
     Indication: CARDIOVASCULAR EVALUATION
     Dosage: 1.5 ML DEFINITY WAS DILUTED IN 8.5 ML OF SALINE IN 1-2 BOLUSES AS NEEDED;INTRAVENOUS BOLUS
     Route: 040
     Dates: start: 20070101, end: 20070101
  2. DEFINITY [Suspect]
     Indication: ECHOCARDIOGRAM
     Dosage: 1.5 ML DEFINITY WAS DILUTED IN 8.5 ML OF SALINE IN 1-2 BOLUSES AS NEEDED;INTRAVENOUS BOLUS
     Route: 040
     Dates: start: 20070101, end: 20070101

REACTIONS (1)
  - CARDIAC FAILURE [None]
